FAERS Safety Report 14924602 (Version 3)
Quarter: 2018Q4

REPORT INFORMATION
  Report Type: Spontaneous
  Country: US (occurrence: US)
  Receive Date: 20180522
  Receipt Date: 20181228
  Transmission Date: 20190204
  Serious: No
  Sender: FDA-Public Use
  Company Number: US-BRISTOL-MYERS SQUIBB COMPANY-BMS-2018-046906

PATIENT
  Sex: Male
  Weight: 111.11 kg

DRUGS (1)
  1. ORENCIA [Suspect]
     Active Substance: ABATACEPT
     Indication: RHEUMATOID ARTHRITIS
     Dosage: 125 MG, QWK
     Route: 058
     Dates: start: 201611

REACTIONS (5)
  - Nausea [Unknown]
  - Gastroenteritis viral [Unknown]
  - Diarrhoea [Unknown]
  - Skin laceration [Unknown]
  - Bronchitis [Unknown]
